FAERS Safety Report 24272901 (Version 1)
Quarter: 2024Q3

REPORT INFORMATION
  Report Type: Spontaneous
  Country: US (occurrence: US)
  Receive Date: 20240902
  Receipt Date: 20240902
  Transmission Date: 20241017
  Serious: Yes (Death, Hospitalization, Other)
  Sender: MLV PHARMA
  Company Number: US-MPL-000057

PATIENT
  Age: 87 Year
  Sex: Male

DRUGS (5)
  1. METHYLPREDNISOLONE [Suspect]
     Active Substance: METHYLPREDNISOLONE
     Indication: Myasthenia gravis
     Route: 065
     Dates: start: 20230809, end: 20230813
  2. RITUXIMAB [Suspect]
     Active Substance: RITUXIMAB
     Indication: Myasthenia gravis
     Route: 065
     Dates: start: 20230821
  3. PEMBROLIZUMAB [Concomitant]
     Active Substance: PEMBROLIZUMAB
     Indication: Transitional cell carcinoma
     Dosage: CYCLE 1 (C1) AND CYCLE 2 (C2) OF PEMBROLIZUMAB
     Route: 065
  4. PYRIDOSTIGMINE [Suspect]
     Active Substance: PYRIDOSTIGMINE
     Indication: Myasthenia gravis
     Route: 048
     Dates: start: 20230809, end: 20230811
  5. PYRIDOSTIGMINE [Suspect]
     Active Substance: PYRIDOSTIGMINE
     Indication: Myasthenia gravis
     Route: 065
     Dates: start: 20230818, end: 20230823

REACTIONS (6)
  - Aspiration [Fatal]
  - Drug ineffective [Unknown]
  - Ophthalmoplegia [Unknown]
  - Disease progression [Unknown]
  - Dysphagia [Unknown]
  - Hypotension [Unknown]

NARRATIVE: CASE EVENT DATE: 20230811
